FAERS Safety Report 6212192-2 (Version None)
Quarter: 2009Q2

REPORT INFORMATION
  Report Type: 
  Country: None (occurrence: None)
  Receive Date: 20090602
  Receipt Date: 20090526
  Transmission Date: 20091009
  Serious: Yes (Hospitalization)
  Sender: FDA-Public Use
  Company Number: PHHO2008FR12938

PATIENT
  Sex: Male
  Weight: 90 kg

DRUGS (2)
  1. RAD 666 RAD++CMAS [Suspect]
     Indication: NON-SMALL CELL LUNG CANCER
     Dosage: 5 MG, QD
     Route: 048
     Dates: start: 20081015
  2. TARCEVA [Suspect]
     Indication: NON-SMALL CELL LUNG CANCER
     Dosage: 150 MG, QD
     Route: 048
     Dates: start: 20081015

REACTIONS (3)
  - CYTOLYTIC HEPATITIS [None]
  - FOLLICULITIS [None]
  - MUCOSAL INFLAMMATION [None]
